FAERS Safety Report 7275062-7 (Version None)
Quarter: 2011Q1

REPORT INFORMATION
  Report Type: 
  Country: None (occurrence: None)
  Receive Date: 20110204
  Receipt Date: 20110127
  Transmission Date: 20110831
  Serious: No
  Sender: FDA-Public Use
  Company Number: B0697641A

PATIENT
  Age: 9 Year
  Sex: Male

DRUGS (1)
  1. RELENZA [Suspect]
     Dosage: 2IUAX PER DAY
     Route: 055
     Dates: start: 20110125, end: 20110126

REACTIONS (1)
  - UNDERDOSE [None]
